FAERS Safety Report 10518924 (Version 1)
Quarter: 2014Q4

REPORT INFORMATION
  Report Type: Spontaneous
  Country: US (occurrence: None)
  Receive Date: 20141014
  Receipt Date: 20141014
  Transmission Date: 20150528
  Serious: No
  Sender: FDA-Public Use
  Company Number: None

PATIENT

DRUGS (2)
  1. HYDROCODONE BITARTRATE AND ACETAMINOPHEN HYDROCODONE-ACETAMINOPHEN [Suspect]
     Active Substance: ACETAMINOPHEN\HYDROCODONE BITARTRATE
  2. HYDROCORTISONE (HYDROCORTISONE) [Suspect]
     Active Substance: HYDROCORTISONE

REACTIONS (3)
  - Product name confusion [None]
  - Wrong drug administered [None]
  - Product physical issue [None]
